FAERS Safety Report 6894720-7 (Version None)
Quarter: 2010Q3

REPORT INFORMATION
  Report Type: 
  Country: None (occurrence: None)
  Receive Date: 20100728
  Receipt Date: 20100719
  Transmission Date: 20110219
  Serious: Yes (Life-Threatening, Hospitalization)
  Sender: FDA-Public Use
  Company Number: 2010MA000976

PATIENT
  Age: 72 Year
  Sex: Female

DRUGS (14)
  1. TRAMADOL HYDROCHLORIDE [Suspect]
     Indication: PAIN
     Dosage: 50 MG;PRN;PO
     Route: 048
     Dates: start: 20100710, end: 20100710
  2. ORAMORPH SR [Suspect]
     Indication: PAIN
     Dosage: 10MG;PRN
     Dates: start: 20100710, end: 20100710
  3. MS CONTIN [Suspect]
     Indication: PAIN
     Dosage: 20 MG X1
     Dates: start: 20100710, end: 20100710
  4. PAREGORIC LIQUID USP (ALPHARMA) (PAREGORIC) [Suspect]
     Indication: PAIN
     Dosage: 2.5 MG;X1;SC
     Route: 058
     Dates: start: 20100710, end: 20100710
  5. NOVORAPID [Concomitant]
  6. PARACETAMOL [Concomitant]
  7. MIRTAZAPINE [Concomitant]
  8. ATORVASTATIN [Concomitant]
  9. FOLIC ACID [Concomitant]
  10. NOVOMIX [Concomitant]
  11. GLICLAZIDE [Concomitant]
  12. LISINOPRIL [Concomitant]
  13. PRAZOSIN [Concomitant]
  14. BUMETANIDE [Concomitant]

REACTIONS (4)
  - LOWER RESPIRATORY TRACT INFECTION [None]
  - PAIN [None]
  - RESPIRATORY ARREST [None]
  - SEPSIS [None]
